FAERS Safety Report 4777613-0 (Version None)
Quarter: 2005Q3

REPORT INFORMATION
  Report Type: 
  Country: None (occurrence: None)
  Receive Date: 20050921
  Receipt Date: 20050907
  Transmission Date: 20060218
  Serious: Yes (Hospitalization, Other)
  Sender: FDA-Public Use
  Company Number: USA0506101273

PATIENT
  Age: 79 Year
  Sex: Female

DRUGS (3)
  1. FORTEO [Suspect]
     Indication: OSTEOPOROSIS
     Dates: start: 20030801
  2. ACE INHIBITOR [Concomitant]
  3. BLOOD PRESSURE MEDICATION [Concomitant]

REACTIONS (26)
  - ASTHENIA [None]
  - ATRIAL FIBRILLATION [None]
  - BLOOD PRESSURE DIASTOLIC DECREASED [None]
  - BLOOD PRESSURE INADEQUATELY CONTROLLED [None]
  - BUNDLE BRANCH BLOCK RIGHT [None]
  - CHEST PAIN [None]
  - DIARRHOEA [None]
  - DYSPNOEA [None]
  - EJECTION FRACTION DECREASED [None]
  - ELECTROCARDIOGRAM ST SEGMENT DEPRESSION [None]
  - ELECTROCARDIOGRAM T WAVE INVERSION [None]
  - HEART RATE DECREASED [None]
  - HYPERKALAEMIA [None]
  - HYPERTENSION [None]
  - HYPOTENSION [None]
  - ISCHAEMIC HEPATITIS [None]
  - MITRAL VALVE INCOMPETENCE [None]
  - NAUSEA [None]
  - NODAL RHYTHM [None]
  - PERICARDIAL EFFUSION [None]
  - PHARMACEUTICAL PRODUCT COMPLAINT [None]
  - PULMONARY EMBOLISM [None]
  - PULMONARY VALVE INCOMPETENCE [None]
  - RENAL FAILURE ACUTE [None]
  - SUBENDOCARDIAL ISCHAEMIA [None]
  - VOMITING [None]
